FAERS Safety Report 6523027-2 (Version None)
Quarter: 2009Q4

REPORT INFORMATION
  Report Type: 
  Country: None (occurrence: None)
  Receive Date: 20091222
  Receipt Date: 20091210
  Transmission Date: 20100525
  Serious: Yes (Hospitalization)
  Sender: FDA-Public Use
  Company Number: AMAG200900072

PATIENT
  Age: 61 Year
  Sex: Female
  Weight: 47.2 kg

DRUGS (13)
  1. FERAHEME [Suspect]
     Indication: IRON DEFICIENCY ANAEMIA
     Dosage: 510 MG, INTRAVENOUS
     Route: 042
     Dates: start: 20091208, end: 20091208
  2. LABETALOL HCL [Concomitant]
  3. LIPITOR [Concomitant]
  4. LANTUS [Concomitant]
  5. NIFEDIPINE ER (NIFEDIPINE) [Concomitant]
  6. BENICAR [Concomitant]
  7. LORAZEPAM [Concomitant]
  8. FOSRENOL (LANTHANUM CARBONATE) [Concomitant]
  9. CLONAZEPAM [Concomitant]
  10. SYMBICORT FORTE (BUDESONIDE, FORMOTEROL FUMARATE) [Concomitant]
  11. VITAMINS [Concomitant]
  12. HYDROCODONE BITARTRATE [Concomitant]
  13. TUMS (CALCIUM CARBONATE, MAGNESIUM CARBONATE, MAGNESIUM TRISLLICATE) [Concomitant]

REACTIONS (3)
  - FOAMING AT MOUTH [None]
  - SYNCOPE [None]
  - UNRESPONSIVE TO STIMULI [None]
